FAERS Safety Report 5253683-0 (Version None)
Quarter: 2007Q1

REPORT INFORMATION
  Report Type: 
  Country: None (occurrence: None)
  Receive Date: 20070226
  Receipt Date: 20061206
  Transmission Date: 20070707
  Serious: Yes (Life-Threatening, Hospitalization, Other)
  Sender: FDA-Public Use
  Company Number: DSA_29387_2007

PATIENT
  Age: 28 Year
  Sex: Female

DRUGS (2)
  1. DILTIAZEM [Suspect]
     Dosage: 100 DF ONCE PO
     Route: 048
  2. HYDROXYZINE [Suspect]
     Dosage: 100 DF ONCE PO
     Route: 048

REACTIONS (13)
  - ABDOMINAL PAIN [None]
  - BLOOD PH INCREASED [None]
  - BLOOD PRESSURE DECREASED [None]
  - DRUG LEVEL INCREASED [None]
  - EXTRAVASATION [None]
  - INCORRECT DOSE ADMINISTERED [None]
  - NODAL RHYTHM [None]
  - OXYGEN SATURATION DECREASED [None]
  - PCO2 DECREASED [None]
  - PLEURAL EFFUSION [None]
  - PULMONARY CONGESTION [None]
  - SUICIDE ATTEMPT [None]
  - VENTRICULAR DYSFUNCTION [None]
